FAERS Safety Report 6805533-6 (Version None)
Quarter: 2010Q2

REPORT INFORMATION
  Report Type: 
  Country: None (occurrence: None)
  Receive Date: 20100628
  Receipt Date: 20100628
  Transmission Date: 20101027
  Serious: No
  Sender: FDA-Public Use
  Company Number: None

PATIENT
  Sex: Male

DRUGS (1)
  1. ELAVIL [Suspect]
     Indication: NEUROPATHY PERIPHERAL
     Dosage: 25 MG TWICE DAILY
     Dates: start: 20100623

REACTIONS (2)
  - DISORIENTATION [None]
  - HYPERSOMNIA [None]
